FAERS Safety Report 19380136 (Version 1)
Quarter: 2021Q2

REPORT INFORMATION
  Report Type: Spontaneous
  Country: US (occurrence: US)
  Receive Date: 20210607
  Receipt Date: 20210607
  Transmission Date: 20210717
  Serious: Yes (Hospitalization, Other)
  Sender: FDA-Public Use
  Company Number: US-AUROBINDO-AUR-APL-2019-082635

PATIENT
  Age: 79 Year
  Sex: Female

DRUGS (6)
  1. GLYBURIDE. [Interacting]
     Active Substance: GLYBURIDE
     Indication: TYPE 2 DIABETES MELLITUS
     Dosage: UNK
     Route: 065
  2. SERTRALINE [Interacting]
     Active Substance: SERTRALINE HYDROCHLORIDE
     Indication: DEPRESSION
     Dosage: 150 MILLIGRAM, IN THE MORNING
     Route: 065
  3. MIRTAZAPINE. [Interacting]
     Active Substance: MIRTAZAPINE
     Indication: DEPRESSION
     Dosage: UNK
     Route: 065
  4. ALCOHOL. [Interacting]
     Active Substance: ALCOHOL
     Indication: PRODUCT USED FOR UNKNOWN INDICATION
     Dosage: UNK
     Route: 065
  5. LORAZEPAM. [Suspect]
     Active Substance: LORAZEPAM
     Indication: INSOMNIA
     Dosage: 0.5 MILLIGRAM, ONCE A DAY
     Route: 065
  6. METOPROLOL. [Interacting]
     Active Substance: METOPROLOL
     Indication: HYPERTENSION
     Dosage: UNK
     Route: 065

REACTIONS (12)
  - Product administration error [Unknown]
  - Insomnia [Unknown]
  - Cognitive disorder [Unknown]
  - Weight decreased [Unknown]
  - Loss of consciousness [Recovered/Resolved]
  - Alcoholism [Unknown]
  - Lethargy [Unknown]
  - Decreased appetite [Unknown]
  - Alcohol interaction [Unknown]
  - Blood glucose increased [Unknown]
  - Drug ineffective [Unknown]
  - Anxiety [Unknown]
